FAERS Safety Report 4647478-6 (Version None)
Quarter: 2005Q2

REPORT INFORMATION
  Report Type: 
  Country: None (occurrence: None)
  Receive Date: 20050428
  Receipt Date: 20050428
  Transmission Date: 20051028
  Serious: No
  Sender: FDA-Public Use
  Company Number: None

PATIENT
  Age: 61 Year
  Sex: Female

DRUGS (3)
  1. MACRODANTIN [Suspect]
     Dates: start: 20021001, end: 20040825
  2. MULTI-VITAMIN + MINERAL SUPPLEMENT [Suspect]
     Dates: start: 20040301, end: 20040701
  3. FULL SPECTRUM MINERALS [Suspect]
     Dates: start: 20040301, end: 20040701

REACTIONS (2)
  - ALANINE AMINOTRANSFERASE INCREASED [None]
  - ASPARTATE AMINOTRANSFERASE INCREASED [None]
